FAERS Safety Report 17685293 (Version 2)
Quarter: 2020Q4

REPORT INFORMATION
  Report Type: Spontaneous
  Country: CH (occurrence: CZ)
  Receive Date: 20200420
  Receipt Date: 20201020
  Transmission Date: 20210113
  Serious: Yes (Death, Other)
  Sender: FDA-Public Use
  Company Number: CZ-ASTELLAS-2020US013990

PATIENT
  Sex: Female

DRUGS (2)
  1. ECALTA [Concomitant]
     Active Substance: ANIDULAFUNGIN
     Indication: PRODUCT USED FOR UNKNOWN INDICATION
     Dosage: UNK UNK, UNKNOWN FREQ.
     Route: 065
  2. ISAVUCONAZOLE [Suspect]
     Active Substance: ISAVUCONAZOLE
     Indication: ASPERGILLOSIS ORAL
     Dosage: UNK UNK, UNKNOWN FREQ.
     Route: 042
     Dates: start: 202003

REACTIONS (2)
  - Disease progression [Fatal]
  - Aspergillosis oral [Fatal]
